FAERS Safety Report 5975232-1 (Version None)
Quarter: 2008Q4

REPORT INFORMATION
  Report Type: 
  Country: None (occurrence: None)
  Receive Date: 20081202
  Receipt Date: 20081120
  Transmission Date: 20090506
  Serious: Yes (Other)
  Sender: FDA-Public Use
  Company Number: US-CELGENEUS-163-21880-08101435

PATIENT
  Sex: Female

DRUGS (5)
  1. REVLIMID [Suspect]
     Route: 048
     Dates: start: 20080728
  2. REVLIMID [Suspect]
     Route: 048
     Dates: start: 20080310, end: 20080701
  3. REVLIMID [Suspect]
     Route: 048
     Dates: start: 20071109, end: 20080201
  4. DEXAMETHASONE [Concomitant]
     Indication: MULTIPLE MYELOMA
     Route: 065
  5. GLEEVEC [Concomitant]
     Route: 065

REACTIONS (3)
  - ASTHENIA [None]
  - EYE HAEMORRHAGE [None]
  - VISION BLURRED [None]
